FAERS Safety Report 11529716 (Version 7)
Quarter: 2016Q1

REPORT INFORMATION
  Report Type: Report from Study
  Country: US (occurrence: US)
  Receive Date: 20150921
  Receipt Date: 20160316
  Transmission Date: 20160525
  Serious: Yes (Life-Threatening, Hospitalization, Disabling)
  Sender: FDA-Public Use
  Company Number: US-ROCHE-1634823

PATIENT
  Age: 78 Year
  Sex: Male
  Weight: 72.1 kg

DRUGS (13)
  1. PROSCAR [Concomitant]
     Active Substance: FINASTERIDE
     Indication: POLLAKIURIA
     Route: 048
     Dates: start: 20140421
  2. PRILOSEC [Concomitant]
     Active Substance: OMEPRAZOLE MAGNESIUM
     Indication: GASTROOESOPHAGEAL REFLUX DISEASE
     Route: 048
     Dates: start: 20150512
  3. ATEZOLIZUMAB [Suspect]
     Active Substance: ATEZOLIZUMAB
     Indication: RENAL CELL CARCINOMA
     Route: 042
     Dates: start: 20150831
  4. NORVASC [Concomitant]
     Active Substance: AMLODIPINE BESYLATE
     Indication: BLOOD PRESSURE INCREASED
     Route: 048
     Dates: start: 2008
  5. ASPIRIN. [Concomitant]
     Active Substance: ASPIRIN
     Dosage: INDICATION: CARDIAC HEALTH
     Route: 048
     Dates: start: 2005
  6. MYCOSTATIN [Concomitant]
     Active Substance: NYSTATIN
     Indication: MUCOSAL INFLAMMATION
     Dosage: STRENGTH:500,000 UNITS/5 ML
     Route: 048
     Dates: start: 20150913
  7. CALCIUM CITRATE WITH VITAMIN D3 [Concomitant]
     Dosage: INDICATION: BONE HEALTH.
     Route: 048
     Dates: start: 2005
  8. SYNTHROID [Concomitant]
     Active Substance: LEVOTHYROXINE SODIUM
     Indication: HYPOTHYROIDISM
     Route: 048
     Dates: start: 20141231
  9. COZAAR [Concomitant]
     Active Substance: LOSARTAN POTASSIUM
     Indication: BLOOD PRESSURE INCREASED
     Route: 048
     Dates: start: 20150611
  10. COUMADIN [Concomitant]
     Active Substance: WARFARIN SODIUM
     Dosage: INDICATION: ANIT-COAGULATION.
     Route: 048
     Dates: start: 20150527
  11. BEVACIZUMAB [Suspect]
     Active Substance: BEVACIZUMAB
     Indication: RENAL CELL CARCINOMA
     Route: 042
     Dates: start: 20150831
  12. ZOCOR [Concomitant]
     Active Substance: SIMVASTATIN
     Indication: ANGIOPATHY
     Route: 048
     Dates: start: 20150512
  13. MYCOSTATIN [Concomitant]
     Active Substance: NYSTATIN
     Indication: SYSTEMIC INFLAMMATORY RESPONSE SYNDROME
     Dosage: STRENGTH:100,000 UNITS/ML
     Route: 048
     Dates: start: 20150915, end: 20151012

REACTIONS (1)
  - Systemic inflammatory response syndrome [Recovered/Resolved]

NARRATIVE: CASE EVENT DATE: 20150914
